FAERS Safety Report 25892577 (Version 1)
Quarter: 2025Q4

REPORT INFORMATION
  Report Type: Spontaneous
  Country: US (occurrence: US)
  Receive Date: 20251007
  Receipt Date: 20251007
  Transmission Date: 20260119
  Serious: No
  Sender: CB FLEET
  Company Number: US-PRESTIGE-202409-US-003229

PATIENT
  Sex: Female

DRUGS (4)
  1. MICONAZOLE 1 WALGREENS [Suspect]
     Active Substance: MICONAZOLE NITRATE
     Indication: Fungal infection
     Dosage: USING THE MICONAZOLE LAST NIGHT
  2. MICONAZOLE 1 WALGREENS [Suspect]
     Active Substance: MICONAZOLE NITRATE
  3. MICONAZOLE 1 WALGREENS [Suspect]
     Active Substance: MICONAZOLE NITRATE
  4. VAGISIL [BENZOCAINE] [Concomitant]

REACTIONS (3)
  - Burning sensation [Not Recovered/Not Resolved]
  - Nausea [Not Recovered/Not Resolved]
  - Headache [Not Recovered/Not Resolved]
